FAERS Safety Report 5416627-4 (Version None)
Quarter: 2007Q3

REPORT INFORMATION
  Report Type: 
  Country: None (occurrence: None)
  Receive Date: 20070816
  Receipt Date: 20070810
  Transmission Date: 20080115
  Serious: Yes (Hospitalization)
  Sender: FDA-Public Use
  Company Number: GB-AVENTIS-200717419GDDC

PATIENT
  Age: 59 Year
  Sex: Male

DRUGS (8)
  1. LANTUS [Suspect]
     Route: 058
  2. ISOSORBIDE DINITRATE [Concomitant]
     Route: 048
  3. MONONITRAT [Concomitant]
     Route: 048
  4. PLAVIX [Concomitant]
     Route: 048
  5. LIPITOR [Concomitant]
     Route: 048
  6. ASPIRIN [Concomitant]
     Route: 048
  7. BISOPROLOL [Concomitant]
  8. GLYBURIDE [Concomitant]

REACTIONS (1)
  - MYOCARDIAL INFARCTION [None]
